FAERS Safety Report 11729354 (Version 4)
Quarter: 2016Q2

REPORT INFORMATION
  Report Type: Spontaneous
  Country: FR (occurrence: FR)
  Receive Date: 20151112
  Receipt Date: 20160629
  Transmission Date: 20160815
  Serious: Yes (Disabling, Other)
  Sender: FDA-Public Use
  Company Number: FR-BAYER-2015-459767

PATIENT
  Age: 59 Year
  Sex: Female

DRUGS (1)
  1. IZILOX [Suspect]
     Active Substance: MOXIFLOXACIN HYDROCHLORIDE
     Indication: SINUSITIS
     Dosage: 1 DF, QD
     Dates: start: 20140724, end: 201407

REACTIONS (20)
  - Vision blurred [None]
  - Discomfort [None]
  - Visual impairment [None]
  - Iris vascular disorder [None]
  - Pigment dispersion syndrome [None]
  - Vitreous detachment [None]
  - Uveitis [None]
  - Pain [None]
  - Insomnia [None]
  - Pigmentary glaucoma [None]
  - Neck pain [None]
  - Iris disorder [None]
  - Pain in jaw [None]
  - Impaired driving ability [None]
  - Optic nerve injury [None]
  - Photophobia [None]
  - Accommodation disorder [None]
  - Anxiety [None]
  - Eye pain [None]
  - Depression [None]

NARRATIVE: CASE EVENT DATE: 201407
